FAERS Safety Report 8617738-2 (Version None)
Quarter: 2012Q3

REPORT INFORMATION
  Report Type: 
  Country: None (occurrence: None)
  Receive Date: 20120824
  Receipt Date: 20111220
  Transmission Date: 20120928
  Serious: No
  Sender: FDA-Public Use
  Company Number: US-ASTRAZENECA-2011SE77400

PATIENT
  Sex: Female

DRUGS (10)
  1. XOPENEX [Concomitant]
  2. M.V.I. [Concomitant]
  3. CALCIUM [Concomitant]
  4. LOSARTAN POTASSIUM [Concomitant]
  5. CRESTOR [Suspect]
     Route: 048
  6. HYZAAR [Concomitant]
  7. FISH OIL [Concomitant]
  8. VIT E [Concomitant]
  9. ARM VAGER [Concomitant]
  10. SYMBICORT [Suspect]
     Dosage: 160/4.5 MCG, TWO PUFFS , TWO TIMES A DAY
     Route: 055

REACTIONS (3)
  - PAIN [None]
  - DYSLIPIDAEMIA [None]
  - BRONCHIAL HYPERREACTIVITY [None]
